FAERS Safety Report 23733178 (Version 1)
Quarter: 2024Q2

REPORT INFORMATION
  Report Type: Spontaneous
  Country: US (occurrence: US)
  Receive Date: 20240411
  Receipt Date: 20240411
  Transmission Date: 20240717
  Serious: No
  Sender: FDA-Public Use
  Company Number: US-MYLANLABS-2024M1030063

PATIENT
  Age: 71 Year
  Sex: Female
  Weight: 81.65 kg

DRUGS (10)
  1. LYRICA [Suspect]
     Active Substance: PREGABALIN
     Indication: Synkinesis
     Dosage: 25 MILLIGRAM, 3XW (THREE TIMES A WEEK)
     Route: 065
     Dates: start: 20240202
  2. LYRICA [Suspect]
     Active Substance: PREGABALIN
     Indication: Nerve injury
  3. LYRICA [Suspect]
     Active Substance: PREGABALIN
     Indication: Neuralgia
  4. METOPROLOL [Concomitant]
     Active Substance: METOPROLOL
     Indication: Blood pressure measurement
     Dosage: 25 MILLIGRAM
     Route: 065
  5. AMLODIPINE [Concomitant]
     Active Substance: AMLODIPINE BESYLATE
     Indication: Blood pressure measurement
     Dosage: 10 MILLIGRAM
     Route: 065
  6. HYDROCHLOROTHIAZIDE [Concomitant]
     Active Substance: HYDROCHLOROTHIAZIDE
     Indication: Diuretic therapy
     Dosage: 25 MILLIGRAM
     Route: 065
  7. SYNTHROID [Concomitant]
     Active Substance: LEVOTHYROXINE SODIUM
     Indication: Thyroid disorder
     Dosage: 100 MICROGRAM
     Route: 065
  8. CRESTOR [Concomitant]
     Active Substance: ROSUVASTATIN CALCIUM
     Indication: Blood cholesterol
     Dosage: 10 MILLIGRAM
     Route: 065
  9. VITAMIN D2 [Concomitant]
     Active Substance: ERGOCALCIFEROL
     Indication: Supplementation therapy
     Dosage: 50000 INTERNATIONAL UNIT
     Route: 065
  10. KCL [Concomitant]
     Active Substance: POTASSIUM CHLORIDE
     Indication: Blood potassium
     Dosage: 10 MILLIEQUIVALENT, BID (2 TABLETS A DAY)
     Route: 065

REACTIONS (1)
  - Alopecia [Unknown]

NARRATIVE: CASE EVENT DATE: 20240328
